FAERS Safety Report 7092011 (Version 4)
Quarter: 2018Q3

REPORT INFORMATION
  Report Type: Report from Study
  Country: JP (occurrence: JP)
  Receive Date: 20090824
  Receipt Date: 20180921
  Transmission Date: 20181010
  Serious: Yes (Other)
  Sender: FDA-Public Use
  Company Number: PHHY2009JP14833

PATIENT
  Age: 66 Year
  Sex: Male

DRUGS (9)
  1. TASIGNA [Suspect]
     Active Substance: NILOTINIB
     Dosage: 200 MG/DAY
     Dates: start: 20090421, end: 20090527
  2. KLARICID [Concomitant]
     Active Substance: CLARITHROMYCIN
     Dosage: 400 MG, UNK
     Route: 048
     Dates: start: 20090408, end: 20090420
  3. PREDONINE [Concomitant]
     Active Substance: PREDNISOLONE
     Indication: CHRONIC MYELOID LEUKAEMIA
     Dosage: 10 MG, UNK
     Route: 048
     Dates: start: 20080821, end: 20081002
  4. TASIGNA [Suspect]
     Active Substance: NILOTINIB
     Route: 048
     Dates: start: 20090403, end: 20090407
  5. TASIGNA [Suspect]
     Active Substance: NILOTINIB
     Route: 048
     Dates: start: 20090421, end: 20090527
  6. CELESTAMINE [Concomitant]
     Active Substance: BETAMETHASONE\DEXCHLORPHENIRAMINE MALEATE
     Indication: CHRONIC MYELOID LEUKAEMIA
     Dosage: 2 DF, UNK
     Route: 048
     Dates: start: 20080710, end: 20080716
  7. MUCODYNE [Concomitant]
     Active Substance: CARBOCYSTEINE
     Dosage: 1500 MG, UNK
     Route: 048
     Dates: start: 20090408, end: 20090420
  8. TASIGNA [Suspect]
     Active Substance: NILOTINIB
     Indication: CHRONIC MYELOID LEUKAEMIA
     Dosage: 800 MG DAILY
     Route: 048
     Dates: start: 20090403, end: 20090407
  9. ASTOMIN [Concomitant]
     Active Substance: DIMEMORFAN
     Dosage: 300 MG/DAY
     Route: 048
     Dates: start: 20090408, end: 20090420

REACTIONS (13)
  - Gamma-glutamyltransferase increased [Recovered/Resolved]
  - Bronchitis [Recovered/Resolved]
  - Pyrexia [Recovered/Resolved]
  - Dyspnoea [Recovered/Resolved]
  - Hepatic function abnormal [Unknown]
  - Generalised erythema [Recovered/Resolved]
  - Blood alkaline phosphatase increased [Recovered/Resolved]
  - Blood bilirubin increased [Recovered/Resolved]
  - Pleural effusion [Recovered/Resolved]
  - Productive cough [Recovered/Resolved]
  - Blood glucose increased [Recovered/Resolved]
  - Aspartate aminotransferase increased [Recovered/Resolved]
  - Cough [Recovered/Resolved]

NARRATIVE: CASE EVENT DATE: 20090405
